FAERS Safety Report 9165438 (Version 1)
Quarter: 2013Q1

REPORT INFORMATION
  Report Type: Spontaneous
  Country: US (occurrence: US)
  Receive Date: 20130315
  Receipt Date: 20130315
  Transmission Date: 20140127
  Serious: No
  Sender: FDA-Public Use
  Company Number: US-009507513-1303USA007348

PATIENT
  Sex: 0

DRUGS (2)
  1. VICTRELIS [Suspect]
  2. PEG-INTRON [Suspect]

REACTIONS (1)
  - Adverse event [Unknown]
